FAERS Safety Report 12641862 (Version 2)
Quarter: 2018Q2

REPORT INFORMATION
  Report Type: Report from Study
  Country: JP (occurrence: JP)
  Receive Date: 20160810
  Receipt Date: 20180529
  Transmission Date: 20180711
  Serious: Yes (Hospitalization)
  Sender: FDA-Public Use
  Company Number: JP-DSJP-DSJ-2016-126969

PATIENT

DRUGS (36)
  1. HEPARIN [Concomitant]
     Active Substance: HEPARIN SODIUM
     Dosage: 10000IU/DAY
     Route: 058
     Dates: start: 20151121, end: 20151122
  2. FUROSEMIDE. [Concomitant]
     Active Substance: FUROSEMIDE
     Dosage: 20MG/DAY
     Route: 048
     Dates: end: 20151123
  3. BIO-THREE [Concomitant]
     Active Substance: HERBALS
     Dosage: 3DF/DAY
     Route: 048
     Dates: end: 20151123
  4. TAKEPRON [Concomitant]
     Active Substance: LANSOPRAZOLE
     Dosage: 60MG/DAY
     Route: 042
     Dates: start: 20151124, end: 20151125
  5. PRORNER [Concomitant]
     Active Substance: BERAPROST SODIUM
     Dosage: 60UG/DAY
     Route: 048
     Dates: start: 20151201, end: 20160104
  6. ALLOPURINOL. [Concomitant]
     Active Substance: ALLOPURINOL
     Dosage: 100MG/DAY
     Route: 048
     Dates: end: 20151123
  7. OLMETEC [Concomitant]
     Active Substance: OLMESARTAN MEDOXOMIL
     Dosage: 20MG/DAY
     Route: 048
     Dates: start: 20151201, end: 20160819
  8. LUPRAC [Concomitant]
     Active Substance: TORSEMIDE
     Dosage: 4MG/DAY
     Route: 048
     Dates: end: 20151123
  9. MUCODYNE [Concomitant]
     Active Substance: CARBOCYSTEINE
     Dosage: 1500MG/DAY
     Route: 048
     Dates: start: 20151126, end: 20160726
  10. ROXITHROMYCIN [Concomitant]
     Active Substance: ROXITHROMYCIN
     Dosage: 150MG/DAY
     Route: 048
     Dates: start: 20151126, end: 20160113
  11. HEPARIN [Concomitant]
     Active Substance: HEPARIN SODIUM
     Dosage: 15000IU/DAY
     Route: 058
     Dates: start: 20151123, end: 20151123
  12. LANSOPRAZOLE. [Concomitant]
     Active Substance: LANSOPRAZOLE
     Dosage: 15MG/DAY
     Route: 048
     Dates: end: 20151123
  13. LANSOPRAZOLE. [Concomitant]
     Active Substance: LANSOPRAZOLE
     Dosage: 30MG/DAY
     Route: 048
     Dates: start: 20151126, end: 20170227
  14. FUROSEMIDE. [Concomitant]
     Active Substance: FUROSEMIDE
     Dosage: 20MG/DAY
     Route: 048
     Dates: start: 20151201, end: 20160119
  15. SPIRIVA [Concomitant]
     Active Substance: TIOTROPIUM BROMIDE MONOHYDRATE
     Dosage: 5UG/DAY
     Route: 055
     Dates: end: 20161226
  16. MUCODYNE [Concomitant]
     Active Substance: CARBOCYSTEINE
     Dosage: 1500MG/DAY
     Route: 048
     Dates: end: 20151123
  17. WARFARIN [Concomitant]
     Active Substance: WARFARIN
     Dosage: 3.5MG/DAY
     Route: 048
     Dates: start: 20160123, end: 20170227
  18. OLMETEC [Concomitant]
     Active Substance: OLMESARTAN MEDOXOMIL
     Dosage: 20MG/DAY
     Route: 048
     Dates: start: 20160104, end: 20170227
  19. FRANDOL [Concomitant]
     Active Substance: ISOSORBIDE DINITRATE
     Dosage: 40MG/DAY
     Route: 050
     Dates: end: 20160726
  20. EDOXABAN [Suspect]
     Active Substance: EDOXABAN TOSYLATE
     Indication: ATRIAL FIBRILLATION
     Dosage: 30 MG, QD
     Route: 048
     Dates: start: 20151128, end: 20160122
  21. HEPARIN [Concomitant]
     Active Substance: HEPARIN SODIUM
     Dosage: 15000IU/DAY
     Route: 058
     Dates: start: 20151125, end: 20151125
  22. HEPARIN [Concomitant]
     Active Substance: HEPARIN SODIUM
     Dosage: 17500IU/DAY
     Route: 058
     Dates: start: 20151126, end: 20151127
  23. ALLOPURINOL. [Concomitant]
     Active Substance: ALLOPURINOL
     Dosage: 100MG/DAY
     Route: 048
     Dates: start: 20151201, end: 20160808
  24. OLMETEC [Concomitant]
     Active Substance: OLMESARTAN MEDOXOMIL
     Dosage: 20MG/DAY
     Route: 048
     Dates: end: 20151123
  25. PLETAAL [Concomitant]
     Active Substance: CILOSTAZOL
     Dosage: 100MG/DAY
     Route: 048
     Dates: end: 20151123
  26. PROMAC                             /01312301/ [Concomitant]
     Active Substance: POLAPREZINC
     Dosage: 150MG/DAY
     Route: 048
     Dates: end: 20151123
  27. PROMAC                             /01312301/ [Concomitant]
     Active Substance: POLAPREZINC
     Dosage: 75MG/DAY
     Route: 048
     Dates: start: 20151128, end: 20151201
  28. BIO-THREE [Concomitant]
     Active Substance: HERBALS
     Dosage: 3DF/DAY
     Route: 048
     Dates: start: 20151201, end: 20160726
  29. WARFARIN [Concomitant]
     Active Substance: WARFARIN
     Dosage: 3.75MG/DAY
     Route: 048
     Dates: end: 20151119
  30. PRORNER [Concomitant]
     Active Substance: BERAPROST SODIUM
     Dosage: 60UG/DAY
     Route: 048
     Dates: end: 20151119
  31. LUPRAC [Concomitant]
     Active Substance: TORSEMIDE
     Dosage: 4MG/DAY
     Route: 048
     Dates: start: 20151201, end: 20160705
  32. PROMAC                             /01312301/ [Concomitant]
     Active Substance: POLAPREZINC
     Dosage: 150MG/DAY
     Route: 048
     Dates: start: 20151201, end: 20160726
  33. MUCODYNE [Concomitant]
     Active Substance: CARBOCYSTEINE
     Dosage: 1500MG/DAY
     Route: 048
     Dates: start: 20160315, end: 20160726
  34. PRORNER [Concomitant]
     Active Substance: BERAPROST SODIUM
     Dosage: 60UG/DAY
     Route: 048
     Dates: start: 20160119, end: 20160819
  35. SUCRALFATE. [Concomitant]
     Active Substance: SUCRALFATE
     Dosage: 30ML/DAY
     Route: 048
     Dates: start: 20151125, end: 20151201
  36. ADONA                              /00056903/ [Concomitant]
     Active Substance: CARBAZOCHROME SODIUM SULFONATE
     Dosage: 50MG/DAY
     Route: 042
     Dates: start: 20151124, end: 20151124

REACTIONS (2)
  - Pneumonia bacterial [Recovering/Resolving]
  - Anaemia [Not Recovered/Not Resolved]

NARRATIVE: CASE EVENT DATE: 201511
